FAERS Safety Report 5718106-3 (Version None)
Quarter: 2008Q2

REPORT INFORMATION
  Report Type: 
  Country: None (occurrence: None)
  Receive Date: 20080425
  Receipt Date: 20080414
  Transmission Date: 20081010
  Serious: Yes (Hospitalization)
  Sender: FDA-Public Use
  Company Number: US-WYE-H03604508

PATIENT
  Age: 2 Year
  Sex: Male

DRUGS (1)
  1. ROBITUSSIN DM [Suspect]
     Indication: COUGH
     Dosage: 1/2 TEASPOON X 1
     Route: 048

REACTIONS (4)
  - BLOOD GLUCOSE DECREASED [None]
  - DRUG ADMINISTRATION ERROR [None]
  - OXYGEN SATURATION DECREASED [None]
  - UNRESPONSIVE TO STIMULI [None]
